FAERS Safety Report 4808717-1 (Version None)
Quarter: 2005Q4

REPORT INFORMATION
  Report Type: 
  Country: None (occurrence: None)
  Receive Date: 20051021
  Receipt Date: 20030922
  Transmission Date: 20060501
  Serious: No
  Sender: FDA-Public Use
  Company Number: JP_030901867

PATIENT
  Age: 55 Year
  Sex: Female

DRUGS (3)
  1. ZYPREXA [Suspect]
     Indication: SCHIZOPHRENIA
     Dosage: 20 MG/DAY
  2. CHLORAMPHENICOL [Concomitant]
  3. VITAMIN A [Concomitant]

REACTIONS (1)
  - WHITE BLOOD CELL COUNT DECREASED [None]
